FAERS Safety Report 8418261-0 (Version None)
Quarter: 2012Q2

REPORT INFORMATION
  Report Type: 
  Country: None (occurrence: None)
  Receive Date: 20120607
  Receipt Date: 20120525
  Transmission Date: 20120825
  Serious: Yes (Hospitalization, Other)
  Sender: FDA-Public Use
  Company Number: JP-COVIDIEN/TYCO HEALTHCARE/MALLINCKRODT-T201202459

PATIENT
  Sex: Male
  Weight: 67.2 kg

DRUGS (22)
  1. METHADON HCL TAB [Suspect]
     Dosage: 15 MG, BID
     Route: 048
     Dates: start: 20120417, end: 20120423
  2. LYRICA [Concomitant]
     Dosage: 75 MG, BID
  3. TELEMINSOFT [Concomitant]
     Indication: CONSTIPATION
     Dosage: UNK, PRN
  4. METHADON HCL TAB [Suspect]
     Dosage: 5 MG, TID
     Route: 048
     Dates: start: 20120329, end: 20120401
  5. METHADON HCL TAB [Suspect]
     Dosage: 30 MG, BID
     Route: 048
     Dates: start: 20120516, end: 20120521
  6. LOXONIN [Concomitant]
     Dosage: 60 MG, TID
  7. PURSENNID                          /00571902/ [Concomitant]
     Dosage: 24 MG, QD
  8. DIART [Concomitant]
     Dosage: 60 MG, QD
  9. METHADON HCL TAB [Suspect]
     Dosage: 10 MG, BID
     Route: 048
     Dates: start: 20120402, end: 20120416
  10. METHADON HCL TAB [Suspect]
     Dosage: 20 MG, BID
     Route: 048
     Dates: start: 20120424, end: 20120507
  11. TRAVELMIN                          /00517301/ [Concomitant]
     Dosage: UNK
  12. MAGMITT [Concomitant]
     Dosage: 330 MG, TID
  13. LAXOBERON [Concomitant]
     Indication: CONSTIPATION
     Dosage: UNK, PRN
  14. METHADON HCL TAB [Suspect]
     Indication: CANCER PAIN
     Dosage: 35 MG, BID
     Route: 048
     Dates: start: 20120522, end: 20120528
  15. RINDERON                           /00008501/ [Concomitant]
     Dosage: 2 MG, QD
  16. MOTILIUM [Concomitant]
     Dosage: 10 MG, TID
  17. GASMOTIN [Concomitant]
     Dosage: 5 MG, TID
  18. METHADON HCL TAB [Suspect]
     Dosage: 25 MG, BID
     Route: 048
     Dates: start: 20120508, end: 20120515
  19. METHADON HCL TAB [Suspect]
     Dosage: 40 MG, BID
     Route: 048
     Dates: start: 20120529
  20. OXINORM                            /00045603/ [Concomitant]
     Indication: CANCER PAIN
     Dosage: 30 MG, PRN
  21. MUCOSTA [Concomitant]
     Dosage: 100 MG, TID
  22. LANSOPRAZOLE [Concomitant]
     Dosage: 15 MG, QD

REACTIONS (2)
  - RESPIRATORY FAILURE [None]
  - OEDEMA [None]
